FAERS Safety Report 25024851 (Version 1)
Quarter: 2025Q1

REPORT INFORMATION
  Report Type: Spontaneous
  Country: US (occurrence: US)
  Receive Date: 20250228
  Receipt Date: 20250228
  Transmission Date: 20250409
  Serious: No
  Sender: PRIMUS PHARMACEUTICALS
  Company Number: US-PRIMUS-2024-US-062009

PATIENT
  Age: 76 Year
  Sex: Female
  Weight: 57.15 kg

DRUGS (8)
  1. SERNIVO [Suspect]
     Active Substance: BETAMETHASONE DIPROPIONATE
     Indication: Psoriasis
     Route: 061
     Dates: start: 20240520, end: 202411
  2. ROSUVASTATIN [Concomitant]
     Active Substance: ROSUVASTATIN
  3. SPIRONOLACTONE [Concomitant]
     Active Substance: SPIRONOLACTONE
  4. PRILOSEC [Concomitant]
     Active Substance: OMEPRAZOLE MAGNESIUM
  5. SUCRALFATE [Concomitant]
     Active Substance: SUCRALFATE
  6. DULOXETINE [Concomitant]
     Active Substance: DULOXETINE
  7. VITAMIN B [Concomitant]
     Active Substance: VITAMIN B
  8. vitaminD [Concomitant]

REACTIONS (5)
  - Hair colour changes [Recovering/Resolving]
  - Rash [Recovering/Resolving]
  - Joint swelling [Recovering/Resolving]
  - Condition aggravated [Recovering/Resolving]
  - Product administered at inappropriate site [Recovered/Resolved]

NARRATIVE: CASE EVENT DATE: 20240520
